FAERS Safety Report 4597888-0 (Version None)
Quarter: 2005Q1

REPORT INFORMATION
  Report Type: 
  Country: None (occurrence: None)
  Receive Date: 20050301
  Receipt Date: 20050222
  Transmission Date: 20050727
  Serious: Yes (Death)
  Sender: FDA-Public Use
  Company Number: 2005-BP-02747RO

PATIENT
  Age: 47 Year
  Sex: Female

DRUGS (1)
  1. PREDNISONE TABLETS UPS, 5MG (PREDNISONE) [Suspect]
     Indication: ASTHMA
     Dosage: PO
     Route: 048

REACTIONS (1)
  - ASPERGILLOSIS [None]
